FAERS Safety Report 15267722 (Version 4)
Quarter: 2018Q3

REPORT INFORMATION
  Report Type: Spontaneous
  Country: DK (occurrence: DK)
  Receive Date: 20180811
  Receipt Date: 20180928
  Transmission Date: 20181010
  Serious: Yes (Other)
  Sender: FDA-Public Use
  Company Number: DK-SA-2018SA210641

PATIENT
  Age: 53 Year
  Sex: Female

DRUGS (9)
  1. ALIROCUMAB PREFILLED PEN [Suspect]
     Active Substance: ALIROCUMAB
     Indication: HYPERCHOLESTEROLAEMIA
     Dosage: 75 MG
     Route: 058
     Dates: start: 20180313, end: 20180620
  2. ACICLODAN [Concomitant]
     Indication: HERPES VIRUS INFECTION
     Dosage: 1 BRUSHING/TOPICAL APPLICATION 5 TIMES A DAY FOR 5 DAYS
  3. PANODIL [Concomitant]
     Active Substance: ACETAMINOPHEN
     Indication: PAIN
     Dosage: UNK, PRN
     Route: 048
     Dates: start: 20131118
  4. PANODIL [Concomitant]
     Active Substance: ACETAMINOPHEN
     Indication: HEADACHE
  5. IBUPROFEN. [Concomitant]
     Active Substance: IBUPROFEN
     Indication: PAIN
     Dosage: 1200 MG, QD
     Route: 048
     Dates: start: 20140521
  6. PRAVASTATIN SANDOZ [Concomitant]
     Active Substance: PRAVASTATIN
     Indication: HYPERCHOLESTEROLAEMIA
     Dosage: 10 MG, QW
     Route: 048
  7. PRALUENT [Suspect]
     Active Substance: ALIROCUMAB
     Indication: HYPERCHOLESTEROLAEMIA
     Dosage: 75 MG
     Route: 058
     Dates: start: 20180313, end: 20180620
  8. PRAVASTATIN. [Concomitant]
     Active Substance: PRAVASTATIN
     Dosage: 20 MG, 2?3 TIMES A WEEK
  9. ACICLOVIR 1A FARMA [Concomitant]
     Active Substance: ACYCLOVIR
     Indication: HERPES VIRUS INFECTION
     Dosage: 1 DF, FIVE TIMES A DAY
     Route: 048

REACTIONS (15)
  - Nausea [Recovered/Resolved]
  - Head discomfort [Recovered/Resolved]
  - Insomnia [Unknown]
  - Impaired work ability [Unknown]
  - Dysgeusia [Not Recovered/Not Resolved]
  - Asthenia [Unknown]
  - Head discomfort [Not Recovered/Not Resolved]
  - Feeling abnormal [Not Recovered/Not Resolved]
  - Loss of consciousness [Recovered/Resolved]
  - Headache [Not Recovered/Not Resolved]
  - Tinnitus [Recovered/Resolved]
  - Low density lipoprotein increased [Not Recovered/Not Resolved]
  - Alopecia [Not Recovered/Not Resolved]
  - Feeling abnormal [Unknown]
  - Loss of consciousness [Unknown]

NARRATIVE: CASE EVENT DATE: 2018
